FAERS Safety Report 5470530-2 (Version None)
Quarter: 2007Q3

REPORT INFORMATION
  Report Type: 
  Country: None (occurrence: None)
  Receive Date: 20070927
  Receipt Date: 20070927
  Transmission Date: 20080115
  Serious: Yes (Other)
  Sender: FDA-Public Use
  Company Number: None

PATIENT
  Age: 46 Year
  Sex: Female
  Weight: 56.246 kg

DRUGS (1)
  1. CAPZASIN. HP 0.1% CHATTEM, INC. [Suspect]
     Indication: ARTHRITIS
     Dosage: CREAM ONE NIGHT
     Dates: start: 20070925, end: 20070926

REACTIONS (5)
  - APPLICATION SITE BURN [None]
  - APPLICATION SITE IRRITATION [None]
  - APPLICATION SITE WARMTH [None]
  - GAIT DISTURBANCE [None]
  - PHARMACEUTICAL PRODUCT COMPLAINT [None]
